FAERS Safety Report 25095637 (Version 1)
Quarter: 2025Q1

REPORT INFORMATION
  Report Type: Spontaneous
  Country: US (occurrence: US)
  Receive Date: 20250319
  Receipt Date: 20250319
  Transmission Date: 20250409
  Serious: No
  Sender: MERZ
  Company Number: US-ACORDA-ACO_176912_2024

PATIENT
  Sex: Female

DRUGS (2)
  1. AMPYRA [Suspect]
     Active Substance: DALFAMPRIDINE
     Indication: Multiple sclerosis
     Dosage: 10 MILLIGRAM, Q12H
     Route: 048
  2. LEMTRADA [Concomitant]
     Active Substance: ALEMTUZUMAB
     Indication: Product used for unknown indication
     Route: 065

REACTIONS (1)
  - Cardiac disorder [Unknown]
